FAERS Safety Report 4500556-4 (Version None)
Quarter: 2004Q4

REPORT INFORMATION
  Report Type: 
  Country: None (occurrence: None)
  Receive Date: 20041115
  Receipt Date: 20041005
  Transmission Date: 20050328
  Serious: Yes (Death, Hospitalization)
  Sender: FDA-Public Use
  Company Number: 200413106JP

PATIENT
  Age: 75 Year
  Sex: Male
  Weight: 47 kg

DRUGS (3)
  1. TAXOTERE [Suspect]
     Indication: SQUAMOUS CELL CARCINOMA
     Route: 041
     Dates: start: 20030708, end: 20030708
  2. RANDA [Concomitant]
     Indication: SQUAMOUS CELL CARCINOMA
     Route: 041
     Dates: start: 20030728, end: 20030728
  3. ANTINEOPLASTIC AND IMMUNOSUPPRESSIVE AGENTS [Concomitant]
     Indication: SQUAMOUS CELL CARCINOMA
     Route: 048
     Dates: start: 20030714, end: 20030729

REACTIONS (9)
  - ENTEROCOLITIS [None]
  - HAEMODIALYSIS [None]
  - ILEUS PARALYTIC [None]
  - METASTASES TO LUNG [None]
  - MUCOSAL ULCERATION [None]
  - MUCOUS MEMBRANE DISORDER [None]
  - PNEUMONIA [None]
  - RENAL IMPAIRMENT [None]
  - SCAR [None]
